FAERS Safety Report 12265970 (Version 2)
Quarter: 2016Q2

REPORT INFORMATION
  Report Type: Spontaneous
  Country: CN (occurrence: CN)
  Receive Date: 20160413
  Receipt Date: 20160428
  Transmission Date: 20160815
  Serious: Yes (Hospitalization, Other)
  Sender: FDA-Public Use
  Company Number: CN-PFIZER INC-2016204462

PATIENT
  Age: 44 Year
  Sex: Male
  Weight: 86 kg

DRUGS (4)
  1. OLANZAPINE. [Concomitant]
     Active Substance: OLANZAPINE
     Indication: PSYCHOTIC DISORDER
     Dosage: 10 MG, 2X/DAY
     Route: 048
     Dates: start: 20140101, end: 20151029
  2. CHAMPIX [Suspect]
     Active Substance: VARENICLINE TARTRATE
     Indication: ALCOHOLISM
     Dosage: 0.5 MG, 2X/DAY
     Route: 048
     Dates: start: 20150924, end: 20150930
  3. CHAMPIX [Suspect]
     Active Substance: VARENICLINE TARTRATE
     Indication: SMOKING CESSATION THERAPY
     Dosage: 1 MG, 2X/DAY
     Route: 048
     Dates: start: 20151001, end: 20151007
  4. OLANZAPINE. [Concomitant]
     Active Substance: OLANZAPINE
     Indication: BIPOLAR DISORDER

REACTIONS (18)
  - Confusional state [Recovering/Resolving]
  - Activities of daily living impaired [Recovering/Resolving]
  - Syncope [Recovered/Resolved]
  - Radiation skin injury [Unknown]
  - Insomnia [Recovering/Resolving]
  - Respiratory distress [Unknown]
  - Abdominal distension [Recovered/Resolved]
  - Logorrhoea [Unknown]
  - Asthenia [Recovered/Resolved]
  - Blister [Unknown]
  - Snoring [Unknown]
  - Abdominal pain upper [Recovered/Resolved]
  - Fatigue [Recovering/Resolving]
  - Headache [Unknown]
  - Malaise [Unknown]
  - Dizziness [Recovering/Resolving]
  - Swelling [Unknown]
  - Abnormal behaviour [Unknown]

NARRATIVE: CASE EVENT DATE: 20151005
